FAERS Safety Report 5512827-3 (Version None)
Quarter: 2007Q4

REPORT INFORMATION
  Report Type: 
  Country: None (occurrence: None)
  Receive Date: 20071108
  Receipt Date: 20071108
  Transmission Date: 20080405
  Serious: Yes (Life-Threatening, Hospitalization)
  Sender: FDA-Public Use
  Company Number: None

PATIENT
  Age: 2 Month
  Sex: Male
  Weight: 4.95 kg

DRUGS (2)
  1. NORMAL SALINE PREFILLED SYRINGE 3 ML IN 10 CC SYRINGE HOSPIRA [Suspect]
     Indication: FLUSHING
     Dosage: 3 ML PRN FLUSH IV BOLUS
     Route: 040
     Dates: start: 20070901, end: 20071015
  2. NORMAL SALINE PREFILLED SYRINGE 3 ML IN 10 CC SYRINGE HOSPIRA [Suspect]
     Indication: FLUSHING
     Dosage: 3 ML PRN FLUSH IV BOLUS
     Route: 040
     Dates: start: 20070901, end: 20071015

REACTIONS (6)
  - APNOEA [None]
  - BRADYCARDIA [None]
  - CARDIO-RESPIRATORY ARREST [None]
  - CONVULSION [None]
  - MUSCULAR WEAKNESS [None]
  - PALLOR [None]
